FAERS Safety Report 12575635 (Version 1)
Quarter: 2016Q3

REPORT INFORMATION
  Report Type: Spontaneous
  Country: US (occurrence: US)
  Receive Date: 20160720
  Receipt Date: 20160720
  Transmission Date: 20161109
  Serious: No
  Sender: FDA-Public Use
  Company Number: US-SHIRE-US201608601

PATIENT
  Sex: Female
  Weight: 48.53 kg

DRUGS (2)
  1. VYVANSE [Suspect]
     Active Substance: LISDEXAMFETAMINE DIMESYLATE
     Indication: ATTENTION DEFICIT/HYPERACTIVITY DISORDER
     Dosage: 50 MG, 1X/DAY:QD
     Route: 048
  2. VYVANSE [Suspect]
     Active Substance: LISDEXAMFETAMINE DIMESYLATE
     Dosage: UNK, UNKNOWN (TAKES HALF CAPSULE CONTENT UNKNOWN MG)
     Route: 048

REACTIONS (2)
  - Incorrect dose administered [Not Recovered/Not Resolved]
  - Insomnia [Not Recovered/Not Resolved]
